FAERS Safety Report 16192262 (Version 1)
Quarter: 2019Q2

REPORT INFORMATION
  Report Type: Spontaneous
  Country: US (occurrence: US)
  Receive Date: 20190412
  Receipt Date: 20190412
  Transmission Date: 20190711
  Serious: No
  Sender: FDA-Public Use
  Company Number: US-B.I. PHARMACEUTICALS,INC./RIDGEFIELD-2019-BI-016098

PATIENT
  Sex: Female

DRUGS (2)
  1. SOLIQUA 100/33 [Suspect]
     Active Substance: INSULIN GLARGINE\LIXISENATIDE
     Indication: BLOOD GLUCOSE
     Dosage: INCREASE THE DOSE EVERY WEEK
     Route: 065
     Dates: start: 20190224
  2. JARDIANCE [Suspect]
     Active Substance: EMPAGLIFLOZIN
     Indication: PRODUCT USED FOR UNKNOWN INDICATION
     Route: 065

REACTIONS (6)
  - Oral fungal infection [Unknown]
  - Tongue disorder [Unknown]
  - Urticaria [Unknown]
  - Genital infection [Unknown]
  - Hypersensitivity [Unknown]
  - Pruritus [Unknown]
